FAERS Safety Report 22175721 (Version 1)
Quarter: 2023Q2

REPORT INFORMATION
  Report Type: Spontaneous
  Country: US (occurrence: None)
  Receive Date: 20230405
  Receipt Date: 20230405
  Transmission Date: 20230721
  Serious: Yes (Hospitalization, Other)
  Sender: FDA-Public Use
  Company Number: US-Ultragenyx Pharmaceutical Inc.-US-UGNX-23-00297

PATIENT
  Age: 2 Year
  Sex: Male

DRUGS (2)
  1. DOJOLVI [Suspect]
     Active Substance: TRIHEPTANOIN
     Indication: Carnitine palmitoyltransferase deficiency
     Dosage: CCA 30% OF TOTAL KCAL FROM DOJOLVI
  2. DOJOLVI [Suspect]
     Active Substance: TRIHEPTANOIN
     Dates: start: 20230322

REACTIONS (5)
  - Heart transplant [Unknown]
  - Post transplant lymphoproliferative disorder [Unknown]
  - Intestinal perforation [Unknown]
  - Haemodynamic instability [Unknown]
  - Poor peripheral circulation [Unknown]
